FAERS Safety Report 4297503-X (Version None)
Quarter: 2004Q1

REPORT INFORMATION
  Report Type: 
  Country: None (occurrence: None)
  Receive Date: 20040217
  Receipt Date: 20040217
  Transmission Date: 20041129
  Serious: No
  Sender: FDA-Public Use
  Company Number: None

PATIENT
  Sex: Female

DRUGS (2)
  1. ALORA [Suspect]
     Indication: HORMONE REPLACEMENT THERAPY
     Dosage: ONE PATCH TWICE A WEEK
     Dates: start: 20020601, end: 20040105
  2. ALORA [Suspect]
     Indication: MENOPAUSE
     Dosage: ONE PATCH TWICE A WEEK
     Dates: start: 20020601, end: 20040105

REACTIONS (2)
  - DERMATITIS ALLERGIC [None]
  - PHARMACEUTICAL PRODUCT COMPLAINT [None]
